FAERS Safety Report 19316415 (Version 2)
Quarter: 2021Q2

REPORT INFORMATION
  Report Type: Spontaneous
  Country: JP (occurrence: JP)
  Receive Date: 20210527
  Receipt Date: 20210622
  Transmission Date: 20210717
  Serious: Yes (Hospitalization)
  Sender: FDA-Public Use
  Company Number: JP-009507513-2105JPN001594J

PATIENT
  Age: 98 Year
  Sex: Male
  Weight: 60 kg

DRUGS (3)
  1. STROMECTOL [Suspect]
     Active Substance: IVERMECTIN
     Indication: ACARODERMATITIS
     Dosage: 12 MILLIGRAM, QD
     Route: 048
     Dates: start: 20210520, end: 20210520
  2. CLEANAL [Concomitant]
     Active Substance: FUDOSTEINE
     Dosage: UNK
     Route: 048
     Dates: end: 20210520
  3. RACOL [NUTRIENTS NOS] [Concomitant]
     Dosage: UNK
     Route: 048
     Dates: end: 20210520

REACTIONS (2)
  - Cyanosis [Unknown]
  - White blood cell count increased [Unknown]

NARRATIVE: CASE EVENT DATE: 20210520
